FAERS Safety Report 10904252 (Version 1)
Quarter: 2015Q1

REPORT INFORMATION
  Report Type: Spontaneous
  Country: CA (occurrence: None)
  Receive Date: 20150304
  Receipt Date: 20150304
  Transmission Date: 20150721
  Serious: Yes (Disabling, Other)
  Sender: FDA-Public Use
  Company Number: None

PATIENT
  Age: 50 Year
  Sex: Female
  Weight: 68.04 kg

DRUGS (4)
  1. METOPROLOL TARTRATE. [Concomitant]
     Active Substance: METOPROLOL TARTRATE
  2. CYKLOKAPRON [Concomitant]
     Active Substance: TRANEXAMIC ACID
  3. LEVOTHYROXINE [Suspect]
     Active Substance: LEVOTHYROXINE
     Indication: THYROIDECTOMY
     Dosage: 1 PILL, ONCE DAILY, TAKEN BY MOUTH
     Route: 048
  4. TUMS (FOR CALCIUM SUPPLEMENT) [Concomitant]

REACTIONS (1)
  - Toothache [None]

NARRATIVE: CASE EVENT DATE: 20150302
